FAERS Safety Report 8239727-2 (Version None)
Quarter: 2012Q1

REPORT INFORMATION
  Report Type: 
  Country: None (occurrence: None)
  Receive Date: 20120328
  Receipt Date: 20120319
  Transmission Date: 20120608
  Serious: Yes (Disabling)
  Sender: FDA-Public Use
  Company Number: JP-EISAI INC-E0800-00082-SPO-JP

PATIENT
  Age: 52 Year
  Sex: Female

DRUGS (10)
  1. TS-1 [Concomitant]
     Route: 048
  2. LOXONIN [Concomitant]
     Route: 048
  3. MEDROXYPROGESTERONE ACETATE [Concomitant]
     Route: 048
  4. OXYCONTIN HYDROCHLORIDE HYDRATE [Concomitant]
     Route: 048
  5. METHYCOBAL [Concomitant]
     Route: 048
  6. MARZULENE [Concomitant]
     Route: 048
  7. ZOMETA [Concomitant]
     Route: 041
  8. CHINESE MEDICINE [Concomitant]
     Route: 048
  9. PURSENNID [Concomitant]
     Route: 048
  10. SALAGEN [Suspect]
     Route: 048
     Dates: start: 20110604, end: 20110606

REACTIONS (1)
  - OPTIC NEURITIS [None]
